FAERS Safety Report 9219886 (Version 1)
Quarter: 2013Q2

REPORT INFORMATION
  Report Type: Spontaneous
  Country: US (occurrence: None)
  Receive Date: 20130408
  Receipt Date: 20130408
  Transmission Date: 20140414
  Serious: Yes (Life-Threatening, Hospitalization)
  Sender: FDA-Public Use
  Company Number: None

PATIENT
  Age: 44 Year
  Sex: Male
  Weight: 61 kg

DRUGS (1)
  1. TERBINAFINE [Suspect]
     Dosage: 250 MG  DAILY  PO?3-4 WEEKS
     Route: 048
     Dates: start: 20130310, end: 20130404

REACTIONS (2)
  - Toxic epidermal necrolysis [None]
  - Stevens-Johnson syndrome [None]
